FAERS Safety Report 10267797 (Version 2)
Quarter: 2014Q2

REPORT INFORMATION
  Report Type: Spontaneous
  Country: FR (occurrence: FR)
  Receive Date: 20140630
  Receipt Date: 20140630
  Transmission Date: 20141212
  Serious: Yes (Death, Life-Threatening)
  Sender: FDA-Public Use
  Company Number: FR-SA-200811401FR

PATIENT
  Age: 86 Year
  Sex: Male

DRUGS (17)
  1. OFLOCET [Suspect]
     Indication: INFLAMMATION
     Dosage: DOSE UNIT: 200 MG
     Route: 048
     Dates: start: 20080220, end: 20080225
  2. DOLIPRANE [Suspect]
     Indication: PYREXIA
     Dosage: DOSE UNIT: 500 MG
     Route: 048
     Dates: start: 20080207, end: 20080301
  3. LOVENOX [Suspect]
     Indication: PRODUCT USED FOR UNKNOWN INDICATION
     Dosage: DOSE UNIT: .2 ML
     Route: 058
     Dates: start: 20080214, end: 20080225
  4. CEFTRIAXONE DAKOTA PHARM [Suspect]
     Indication: INFLAMMATION
     Route: 042
     Dates: start: 20080210, end: 20080222
  5. OFLOXACIN [Suspect]
     Indication: INFLAMMATION
     Dosage: DOSE UNIT: 200 MG
     Route: 042
     Dates: start: 20080210, end: 20080220
  6. DOMPERIDONE [Suspect]
     Indication: NAUSEA
     Dosage: DOSE AS USED: 10 TO 30  MG?DOSE UNIT: 10 MG
     Route: 048
     Dates: start: 20080207, end: 20080226
  7. CASODEX [Suspect]
     Indication: PROSTATE CANCER METASTATIC
     Dosage: DOSE UNIT: 50 MG
     Route: 048
     Dates: start: 20080211, end: 20080301
  8. ZOLADEX [Suspect]
     Indication: PROSTATE CANCER METASTATIC
     Dosage: DOSE UNIT: 3.6 MG
     Route: 058
     Dates: start: 20080211
  9. TADENAN [Suspect]
     Indication: PRODUCT USED FOR UNKNOWN INDICATION
     Dosage: DOSE UNIT: 50 MG
     Route: 048
     Dates: start: 20080125, end: 20080226
  10. CITALOPRAM [Concomitant]
     Route: 048
     Dates: end: 20080301
  11. TRIATEC [Concomitant]
     Dosage: DOSE UNIT: 1.25 MG
     Route: 048
     Dates: start: 20071030, end: 20080301
  12. ISOPTINE [Concomitant]
     Dosage: SCORED SUSTAIENED RELEASE?DOSE UNIT: 240 MG
     Route: 048
     Dates: start: 20071030, end: 20080301
  13. KARDEGIC /FRA/ [Concomitant]
     Dosage: DOSE UNIT: 75 MG
     Route: 048
     Dates: start: 20071030, end: 20080301
  14. PERMIXON [Concomitant]
     Dosage: DOSE UNIT: 160 MG
     Route: 048
     Dates: start: 20080124, end: 20080125
  15. TAZOCILLINE [Concomitant]
     Dates: start: 20080225, end: 20080301
  16. GENTAMICIN [Concomitant]
     Dates: start: 20080225, end: 20080301
  17. SEROPRAM [Concomitant]
     Dates: end: 20080301

REACTIONS (1)
  - Agranulocytosis [Fatal]
